FAERS Safety Report 19943242 (Version 1)
Quarter: 2021Q4

REPORT INFORMATION
  Report Type: Spontaneous
  Country: US (occurrence: US)
  Receive Date: 20211011
  Receipt Date: 20211011
  Transmission Date: 20220303
  Serious: Yes (Disabling)
  Sender: FDA-Public Use
  Company Number: None

PATIENT
  Age: 67 Year
  Sex: Male
  Weight: 76.5 kg

DRUGS (1)
  1. FINASTERIDE [Suspect]
     Active Substance: FINASTERIDE
     Indication: Prostatomegaly
     Dosage: ?          QUANTITY:1 TABLET(S);
     Route: 048
     Dates: start: 20201001, end: 20210901

REACTIONS (9)
  - Insomnia [None]
  - Fatigue [None]
  - Pruritus [None]
  - Dry skin [None]
  - Eye pain [None]
  - Erectile dysfunction [None]
  - Vision blurred [None]
  - Eye irritation [None]
  - Weight decreased [None]

NARRATIVE: CASE EVENT DATE: 20210901
